FAERS Safety Report 24261707 (Version 1)
Quarter: 2024Q3

REPORT INFORMATION
  Report Type: Spontaneous
  Country: BR (occurrence: BR)
  Receive Date: 20240829
  Receipt Date: 20240829
  Transmission Date: 20241016
  Serious: Yes (Other)
  Sender: BAXTER
  Company Number: BR-BAXTER-2024BAX023156

PATIENT
  Age: 26 Year
  Sex: Female

DRUGS (2)
  1. IRON [Suspect]
     Active Substance: IRON
     Indication: Anaemia
     Dosage: 200 MG DILUTED IN 250 ML OF 0.9% SALINE SOLUTION FOR 1 HOUR, ONCE A WEEK
     Route: 042
     Dates: start: 20240723, end: 20240723
  2. SODIUM CHLORIDE [Suspect]
     Active Substance: SODIUM CHLORIDE
     Indication: Medication dilution
     Dosage: 250 ML, SALINE SOLUTION FOR 1 HOUR, ONCE A WEEK, USED TO DILUTE 200 MG SUCROFER
     Route: 042
     Dates: start: 20240723, end: 20240723

REACTIONS (7)
  - Vision blurred [Recovered/Resolved]
  - Dyspnoea [Recovered/Resolved]
  - Fatigue [Recovered/Resolved]
  - Asthenia [Recovered/Resolved]
  - Paraesthesia [Recovered/Resolved]
  - Maternal exposure during pregnancy [Unknown]
  - Pruritus [Recovered/Resolved]

NARRATIVE: CASE EVENT DATE: 20240723
